FAERS Safety Report 6879678-9 (Version None)
Quarter: 2010Q2

REPORT INFORMATION
  Report Type: 
  Country: None (occurrence: None)
  Receive Date: 20100628
  Receipt Date: 20091201
  Transmission Date: 20101027
  Serious: Yes (Other)
  Sender: FDA-Public Use
  Company Number: 2009305328

PATIENT
  Age: 55 Year
  Sex: Female
  Weight: 59 kg

DRUGS (5)
  1. ESTRING [Suspect]
     Indication: HORMONE REPLACEMENT THERAPY
     Dates: start: 20091119, end: 20091128
  2. SYNTHROID [Concomitant]
  3. PAXIL [Concomitant]
  4. SECTRAL [Concomitant]
  5. FOSAMAX [Concomitant]

REACTIONS (2)
  - MYOCARDIAL INFARCTION [None]
  - TROPONIN T INCREASED [None]
